FAERS Safety Report 12138193 (Version 1)
Quarter: 2016Q1

REPORT INFORMATION
  Report Type: Report from Study
  Country: CA (occurrence: CA)
  Receive Date: 20160302
  Receipt Date: 20160302
  Transmission Date: 20160526
  Serious: Yes (Other)
  Sender: FDA-Public Use
  Company Number: CA-KADMON PHARMACEUTICALS, LLC-KAD201602-000697

PATIENT
  Sex: Male
  Weight: 86 kg

DRUGS (2)
  1. RIBAVIRIN. [Suspect]
     Active Substance: RIBAVIRIN
     Indication: HEPATITIS C
     Dosage: TABLET
     Route: 048
     Dates: start: 20160201, end: 20160219
  2. HOLKIRA PAK [Suspect]
     Active Substance: DASABUVIR\OMBITASVIR\PARITAPREVIR\RITONAVIR
     Indication: HEPATITIS C
     Dosage: TWO 12.5/75/50 MG TABLETS ONCE DAILY AND ONE 250 MG TABLET TWICE DAILY
     Route: 048
     Dates: start: 20160201, end: 20160219

REACTIONS (3)
  - Hepatic failure [Unknown]
  - Tremor [Unknown]
  - Fatigue [Unknown]
